FAERS Safety Report 13022163 (Version 1)
Quarter: 2016Q4

REPORT INFORMATION
  Report Type: Spontaneous
  Country: US (occurrence: US)
  Receive Date: 20161213
  Receipt Date: 20161213
  Transmission Date: 20170207
  Serious: No
  Sender: FDA-Public Use
  Company Number: US-PFIZER INC-2016554099

PATIENT
  Age: 61 Year
  Sex: Male

DRUGS (19)
  1. ZOLPIDEM TARTRATE. [Concomitant]
     Active Substance: ZOLPIDEM TARTRATE
     Dosage: 10 MG, AS NEEDED, (1 TABLET AT BEDTIME AS NEEDED ONCE A DAY)
  2. BACTROBAN [Concomitant]
     Active Substance: MUPIROCIN\MUPIROCIN CALCIUM
     Dosage: AS NEEDED, (1 APPLICATION TO AFFECTED AREA. THREE TIMES A DAY)
  3. ADDERALL [Concomitant]
     Active Substance: AMPHETAMINE ASPARTATE\AMPHETAMINE SULFATE\DEXTROAMPHETAMINE SACCHARATE\DEXTROAMPHETAMINE SULFATE
     Dosage: 60 MG, DAILY(1 TABLET 1 Q AM AND 2 TAB Q NOON)
  4. METFORMIN HCL [Concomitant]
     Active Substance: METFORMIN HYDROCHLORIDE
     Dosage: 1000 MG, 2X/DAY, (500 MG TABLET 2 TABLETS TWICE A DAY)
  5. LYRICA [Suspect]
     Active Substance: PREGABALIN
     Indication: PAIN
     Dosage: 150 MG, AS NEEDED, (TAKE ONE (1) CAPSULE(S) BY MOUTH THREE TIMES A DAY),(FOUR TIMES A DAY (QID))
     Route: 048
  6. ZYRTEC-D [Concomitant]
     Active Substance: CETIRIZINE HYDROCHLORIDE\PSEUDOEPHEDRINE HYDROCHLORIDE
     Indication: HYPERSENSITIVITY
     Dosage: AS NEEDED, (CETIRIZINE HYDROCHLORIDE-5 MG)/(PSEUDOEPHEDRINE HYDROCHLORIDE-120 MG), (12 HOUR 1 TAB)
  7. SYNTHROID [Concomitant]
     Active Substance: LEVOTHYROXINE SODIUM
     Dosage: 25 UG, 1X/DAY, (TABLET 1 TABLET ONCE A DAY)
  8. VITAMIN D3 [Concomitant]
     Active Substance: CHOLECALCIFEROL
     Dosage: 1000 IU, AS NEEDED, (1000 UNIT TABLET 2 TABLETS AS NEEDED (PRN), NOTES: D3)
  9. SIMVASTATIN. [Concomitant]
     Active Substance: SIMVASTATIN
     Dosage: 40 MG, 1X/DAY (IN THE EVENING)
  10. ZYRTEC-D [Concomitant]
     Active Substance: CETIRIZINE HYDROCHLORIDE\PSEUDOEPHEDRINE HYDROCHLORIDE
     Indication: NASAL CONGESTION
  11. EXELON [Concomitant]
     Active Substance: RIVASTIGMINE TARTRATE
     Dosage: 13.3 MG, DAILY; (13.3 MG/ 24 HR PATCH 24 HOUR 1 PATCH), (PT. STOPPED TAKING IT HIMSELF)
     Route: 062
  12. CHLORPHENIRAMINE MALEATE. [Concomitant]
     Active Substance: CHLORPHENIRAMINE MALEATE
     Dosage: 4 MG, AS NEEDED, (1 TABLET AS NEEDED EVERY 6 HRS)
  13. FLUTICASONE PROPIONATE. [Concomitant]
     Active Substance: FLUTICASONE PROPIONATE
     Dosage: UNK UNK, 2X/DAY (50 MCG/ACT SUSPENSION INHALE ONE (1) SPRAY(S))
     Route: 045
  14. CLARITIN [Concomitant]
     Active Substance: LORATADINE
     Dosage: 4 MG, 2X/DAY, (TABLET 1 TABLET BID)
  15. LISINOPRIL. [Concomitant]
     Active Substance: LISINOPRIL
     Dosage: 20 MG, 1X/DAY
  16. METHOCARBAMOL. [Concomitant]
     Active Substance: METHOCARBAMOL
     Dosage: UNK, 4X/DAY, (500 MG TABLET 1 TO 3 TABLETS FOUR TIMES A DAY (QID))
  17. BUPROPION HCL [Concomitant]
     Active Substance: BUPROPION HYDROCHLORIDE
     Dosage: 300 MG, UNK
  18. LUNESTA [Concomitant]
     Active Substance: ESZOPICLONE
     Indication: INSOMNIA
     Dosage: 3 MG, AS NEEDED, (TAKE ONE (1) TABLET(S) BY MOUTH AT BEDTIME)
     Route: 048
  19. FLONASE [Concomitant]
     Active Substance: FLUTICASONE PROPIONATE
     Dosage: 50 UG, 1X/DAY, (50 MCG/ACT SUSPENSION 2 SPRAYS IN EACH NOSTRIL ONCE A DAY)
     Route: 045

REACTIONS (2)
  - Product use issue [Unknown]
  - Visual impairment [Unknown]
